FAERS Safety Report 9412235 (Version 1)
Quarter: 2013Q3

REPORT INFORMATION
  Report Type: Spontaneous
  Country: US (occurrence: None)
  Receive Date: 20130719
  Receipt Date: 20130719
  Transmission Date: 20140515
  Serious: No
  Sender: FDA-Public Use
  Company Number: None

PATIENT
  Sex: Female
  Weight: 56.7 kg

DRUGS (1)
  1. ESCITALOPRAM [Suspect]
     Indication: BIPOLAR I DISORDER
     Dosage: 1 1/2 DAILY
     Route: 048
     Dates: start: 201104

REACTIONS (4)
  - Product substitution issue [None]
  - Depression [None]
  - Anxiety [None]
  - Drug ineffective [None]
